FAERS Safety Report 5418024-4 (Version None)
Quarter: 2007Q3

REPORT INFORMATION
  Report Type: 
  Country: None (occurrence: None)
  Receive Date: 20070817
  Receipt Date: 20070111
  Transmission Date: 20080115
  Serious: No
  Sender: FDA-Public Use
  Company Number: A0632642A

PATIENT
  Age: 81 Year
  Sex: Male

DRUGS (1)
  1. BEXXAR [Suspect]
     Indication: LYMPHOMA
     Route: 065
     Dates: start: 20061102, end: 20061115

REACTIONS (11)
  - CHILLS [None]
  - DISCOMFORT [None]
  - FATIGUE [None]
  - NIGHT SWEATS [None]
  - PARAESTHESIA [None]
  - PAROSMIA [None]
  - POLLAKIURIA [None]
  - PYREXIA [None]
  - URINE OUTPUT INCREASED [None]
  - VISUAL DISTURBANCE [None]
  - WEIGHT DECREASED [None]
